FAERS Safety Report 9981368 (Version 2)
Quarter: 2014Q2

REPORT INFORMATION
  Report Type: Spontaneous
  Country: FR (occurrence: FR)
  Receive Date: 20140307
  Receipt Date: 20140513
  Transmission Date: 20141212
  Serious: Yes (Other)
  Sender: FDA-Public Use
  Company Number: FR-JNJFOC-20140301240

PATIENT
  Age: 82 Year
  Sex: Male
  Weight: 58 kg

DRUGS (6)
  1. XARELTO [Suspect]
     Indication: ATRIAL FIBRILLATION
     Route: 048
     Dates: start: 20140113
  2. XARELTO [Suspect]
     Indication: CEREBROVASCULAR ACCIDENT PROPHYLAXIS
     Route: 048
     Dates: start: 20140113
  3. TAHOR [Concomitant]
     Route: 065
     Dates: start: 20080111
  4. CORDARONE [Concomitant]
     Route: 065
     Dates: start: 20080111, end: 20140307
  5. CARDENSIEL [Concomitant]
     Route: 065
     Dates: start: 20080111
  6. TAREG [Concomitant]
     Route: 065
     Dates: start: 2003

REACTIONS (2)
  - Haematoma [Recovered/Resolved]
  - Intentional product misuse [Unknown]
